FAERS Safety Report 6112128-9 (Version None)
Quarter: 2009Q1

REPORT INFORMATION
  Report Type: 
  Country: None (occurrence: None)
  Receive Date: 20090311
  Receipt Date: 20090305
  Transmission Date: 20090719
  Serious: Yes (Death)
  Sender: FDA-Public Use
  Company Number: FR-MERCK-0903FRA00020

PATIENT
  Age: 75 Year
  Sex: Male

DRUGS (10)
  1. PIPERACILLIN SODIUM AND TAZOBACTAM SODIUM [Suspect]
     Indication: LUNG DISORDER
     Route: 042
     Dates: start: 20090108, end: 20090116
  2. CEFTAZIDIME [Suspect]
     Indication: LUNG DISORDER
     Route: 042
     Dates: start: 20081228, end: 20090107
  3. METRONIDAZOLE [Suspect]
     Indication: LUNG DISORDER
     Route: 042
     Dates: end: 20090111
  4. FILGRASTIM [Suspect]
     Route: 042
     Dates: start: 20081228
  5. ESOMEPRAZOLE MAGNESIUM [Suspect]
     Route: 065
  6. ACETAMINOPHEN [Suspect]
     Indication: PAIN
     Route: 042
  7. CALCIUM GLUCONATE [Suspect]
     Route: 042
  8. OFLOXACIN [Suspect]
     Indication: LUNG DISORDER
     Route: 042
     Dates: start: 20081228, end: 20090108
  9. AMPHOTERICIN B AND CHOLESTEROL AND DISTEAROYLPHOSPHATIDYLGLYCEROL AND [Suspect]
     Indication: LUNG DISORDER
     Route: 065
     Dates: start: 20081230, end: 20090107
  10. CANCIDAS [Suspect]
     Indication: SYSTEMIC CANDIDA
     Route: 042
     Dates: start: 20090108, end: 20090119

REACTIONS (1)
  - CHOLESTASIS [None]
